FAERS Safety Report 4906284-5 (Version None)
Quarter: 2006Q1

REPORT INFORMATION
  Report Type: 
  Country: None (occurrence: None)
  Receive Date: 20060209
  Receipt Date: 20050912
  Transmission Date: 20060701
  Serious: Yes (Death, Hospitalization)
  Sender: FDA-Public Use
  Company Number: DE-ABBOTT-05P-062-0311034-00

PATIENT
  Sex: Male

DRUGS (1)
  1. ERGENYL CHRONO [Suspect]
     Indication: INTENTIONAL OVERDOSE
     Route: 048
     Dates: start: 19920101, end: 19920101

REACTIONS (10)
  - BRAIN OEDEMA [None]
  - CARDIAC ARREST [None]
  - COMA [None]
  - DRUG LEVEL INCREASED [None]
  - HYPERAMMONAEMIA [None]
  - INTENTIONAL OVERDOSE [None]
  - MULTI-ORGAN FAILURE [None]
  - PANCREATITIS HAEMORRHAGIC [None]
  - RESPIRATORY ARREST [None]
  - SHOCK [None]
